FAERS Safety Report 5919499-4 (Version None)
Quarter: 2008Q3

REPORT INFORMATION
  Report Type: 
  Country: None (occurrence: None)
  Receive Date: 20080909
  Receipt Date: 20070414
  Transmission Date: 20090109
  Serious: Yes (Death, Hospitalization)
  Sender: FDA-Public Use
  Company Number: 163-20785-07040831

PATIENT
  Age: 71 Year
  Sex: Female
  Weight: 87.8 kg

DRUGS (1)
  1. THALOMID [Suspect]
     Indication: UTERINE CANCER
     Dosage: SEE IMAGE
     Route: 048
     Dates: start: 20070218, end: 20070302

REACTIONS (16)
  - ACTIVATED PARTIAL THROMBOPLASTIN TIME PROLONGED [None]
  - BLOOD CREATININE INCREASED [None]
  - CONFUSIONAL STATE [None]
  - DEPRESSED LEVEL OF CONSCIOUSNESS [None]
  - DISEASE PROGRESSION [None]
  - FATIGUE [None]
  - GASTROINTESTINAL HAEMORRHAGE [None]
  - HAEMOGLOBIN DECREASED [None]
  - HYPERGLYCAEMIA [None]
  - HYPERTENSION [None]
  - HYPONATRAEMIA [None]
  - HYPOPHOSPHATAEMIA [None]
  - HYPOTENSION [None]
  - HYPOXIA [None]
  - PROTHROMBIN TIME PROLONGED [None]
  - RENAL FAILURE [None]
